FAERS Safety Report 11454400 (Version 1)
Quarter: 2015Q3

REPORT INFORMATION
  Report Type: Spontaneous
  Country: US (occurrence: US)
  Receive Date: 20150831
  Receipt Date: 20150831
  Transmission Date: 20151125
  Serious: Yes (Other)
  Sender: FDA-Public Use
  Company Number: US-ELI_LILLY_AND_COMPANY-US201003001475

PATIENT
  Sex: Female

DRUGS (3)
  1. ULTRAN [Concomitant]
     Active Substance: PHENAGLYCODOL
     Dosage: UNK, UNKNOWN
     Route: 065
  2. CYMBALTA [Suspect]
     Active Substance: DULOXETINE HYDROCHLORIDE
     Indication: MAJOR DEPRESSION
     Dosage: 60 MG, UNKNOWN
     Route: 065
  3. MILNACIPRAN [Concomitant]
     Active Substance: MILNACIPRAN
     Dosage: UNK, UNKNOWN
     Route: 065

REACTIONS (1)
  - Serotonin syndrome [Unknown]
